FAERS Safety Report 11578251 (Version 1)
Quarter: 2015Q3

REPORT INFORMATION
  Report Type: Spontaneous
  Country: US (occurrence: US)
  Receive Date: 20150930
  Receipt Date: 20150930
  Transmission Date: 20151125
  Serious: No
  Sender: FDA-Public Use
  Company Number: US-GE HEALTHCARE MEDICAL DIAGNOSTICS-M123-PR-1303S-0004

PATIENT
  Age: 3 Year
  Sex: Female

DRUGS (4)
  1. ADREVIEW [Suspect]
     Active Substance: IOBENGUANE I-123
     Indication: DIAGNOSTIC PROCEDURE
     Dates: start: 20130305, end: 20130305
  2. ALDACTONE [Concomitant]
     Active Substance: SPIRONOLACTONE
  3. ADREVIEW [Suspect]
     Active Substance: IOBENGUANE I-123
     Indication: NEUROBLASTOMA
     Dates: start: 20130228, end: 20130228
  4. KEPPRA [Concomitant]
     Active Substance: LEVETIRACETAM

REACTIONS (2)
  - No adverse event [Recovered/Resolved]
  - Drug ineffective [Recovered/Resolved]

NARRATIVE: CASE EVENT DATE: 20130228
